FAERS Safety Report 5250660-0 (Version None)
Quarter: 2007Q1

REPORT INFORMATION
  Report Type: 
  Country: None (occurrence: None)
  Receive Date: 20070228
  Receipt Date: 20060613
  Transmission Date: 20070707
  Serious: No
  Sender: FDA-Public Use
  Company Number: US-GLAXOSMITHKLINE-A0608849A

PATIENT
  Age: 28 Year
  Sex: Male

DRUGS (3)
  1. LAMICTAL [Suspect]
     Indication: BIPOLAR DISORDER
     Dosage: 150MG VARIABLE DOSE
     Route: 048
     Dates: end: 20060523
  2. PAXIL [Concomitant]
  3. BUSPAR [Concomitant]

REACTIONS (2)
  - MALAISE [None]
  - RASH [None]
